FAERS Safety Report 8037463-9 (Version None)
Quarter: 2012Q1

REPORT INFORMATION
  Report Type: 
  Country: None (occurrence: None)
  Receive Date: 20120111
  Receipt Date: 20120101
  Transmission Date: 20120608
  Serious: Yes (Other)
  Sender: FDA-Public Use
  Company Number: US-PFIZER INC-2012001011

PATIENT
  Sex: Female

DRUGS (1)
  1. CHANTIX [Suspect]
     Dosage: UNK

REACTIONS (7)
  - EMOTIONAL DISORDER [None]
  - FRUSTRATION [None]
  - CRYING [None]
  - ABNORMAL BEHAVIOUR [None]
  - IRRITABILITY [None]
  - DEPRESSED MOOD [None]
  - TENSION [None]
